FAERS Safety Report 23631240 (Version 1)
Quarter: 2024Q1

REPORT INFORMATION
  Report Type: Spontaneous
  Country: US (occurrence: US)
  Receive Date: 20240314
  Receipt Date: 20240314
  Transmission Date: 20240410
  Serious: No
  Sender: FDA-Public Use
  Company Number: US-HIKMA PHARMACEUTICALS USA INC.-US-H14001-23-67065

PATIENT
  Sex: Female

DRUGS (1)
  1. DESVENLAFAXINE [Suspect]
     Active Substance: DESVENLAFAXINE
     Indication: Product used for unknown indication
     Dosage: UNK, QD
     Route: 065

REACTIONS (6)
  - Allergic reaction to excipient [Unknown]
  - Constipation [Unknown]
  - Dyspepsia [Unknown]
  - Abdominal distension [Unknown]
  - Generalised oedema [Unknown]
  - Oedema peripheral [Unknown]
